FAERS Safety Report 7065608-6 (Version None)
Quarter: 2010Q4

REPORT INFORMATION
  Report Type: 
  Country: None (occurrence: None)
  Receive Date: 20101027
  Receipt Date: 20101013
  Transmission Date: 20110411
  Serious: Yes (Hospitalization)
  Sender: FDA-Public Use
  Company Number: BR-MEDIMMUNE-MEDI-0011657

PATIENT
  Sex: Female
  Weight: 6.7 kg

DRUGS (6)
  1. SYNAGIS [Suspect]
     Indication: BRONCHOPULMONARY DYSPLASIA
     Route: 030
     Dates: start: 20100401
  2. DOMPERIDONE [Concomitant]
     Route: 048
     Dates: start: 20100801
  3. RANITIDINE [Concomitant]
     Route: 048
     Dates: start: 20100801
  4. PROTOVIT [Concomitant]
     Route: 048
     Dates: start: 20100301
  5. SODIUM ASCORBATE [Concomitant]
     Route: 048
     Dates: start: 20100301
  6. FERROUS SULFATE [Concomitant]
     Route: 048
     Dates: start: 20100301

REACTIONS (7)
  - BRONCHIOLITIS [None]
  - COUGH [None]
  - DRUG INEFFECTIVE [None]
  - DYSPNOEA [None]
  - LUNG DISORDER [None]
  - PHARYNGITIS [None]
  - PNEUMONIA [None]
